FAERS Safety Report 6775335-8 (Version None)
Quarter: 2010Q2

REPORT INFORMATION
  Report Type: 
  Country: None (occurrence: None)
  Receive Date: 20100617
  Receipt Date: 20100607
  Transmission Date: 20101027
  Serious: Yes (Other)
  Sender: FDA-Public Use
  Company Number: US-PFIZER INC-2009255204

PATIENT
  Sex: Female

DRUGS (3)
  1. XANAX XR [Suspect]
     Indication: ANXIETY
     Dosage: UNK
  2. ZOLOFT [Suspect]
     Dosage: UNK
  3. NORTRIPTYLINE [Suspect]
     Indication: ANXIETY
     Dosage: UNK

REACTIONS (7)
  - ANXIETY [None]
  - DRUG INEFFECTIVE [None]
  - FEMALE SEXUAL DYSFUNCTION [None]
  - FIBROMYALGIA [None]
  - THYROID DISORDER [None]
  - TREMOR [None]
  - WEIGHT DECREASED [None]
